FAERS Safety Report 21440566 (Version 1)
Quarter: 2022Q4

REPORT INFORMATION
  Report Type: Spontaneous
  Country: US (occurrence: None)
  Receive Date: 20221008
  Receipt Date: 20221008
  Transmission Date: 20230112
  Serious: Yes (Disabling, Other)
  Sender: FDA-Public Use
  Company Number: None

PATIENT
  Age: 53 Year
  Sex: Female
  Weight: 59.85 kg

DRUGS (1)
  1. SUBOXONE [Suspect]
     Active Substance: BUPRENORPHINE HYDROCHLORIDE\NALOXONE HYDROCHLORIDE
     Indication: Migraine
     Dosage: OTHER QUANTITY : 2 STRIP;?
     Route: 060
     Dates: start: 20160101, end: 20221006

REACTIONS (4)
  - Pain [None]
  - Chest pain [None]
  - Back pain [None]
  - Wrong dose [None]

NARRATIVE: CASE EVENT DATE: 20221007
